FAERS Safety Report 15405836 (Version 1)
Quarter: 2018Q3

REPORT INFORMATION
  Report Type: Spontaneous
  Country: US (occurrence: US)
  Receive Date: 20180918
  Receipt Date: 20180918
  Transmission Date: 20181010
  Serious: Yes (Other)
  Sender: FDA-Public Use
  Company Number: None

PATIENT
  Age: 46 Year
  Sex: Female

DRUGS (1)
  1. COPAXONE [Suspect]
     Active Substance: GLATIRAMER ACETATE
     Indication: MULTIPLE SCLEROSIS
     Route: 058
     Dates: start: 20170829, end: 20180917

REACTIONS (5)
  - Dizziness [None]
  - Hypersensitivity [None]
  - Injection site reaction [None]
  - Injection site pain [None]
  - Gait disturbance [None]

NARRATIVE: CASE EVENT DATE: 20180917
